FAERS Safety Report 10744944 (Version 1)
Quarter: 2015Q1

REPORT INFORMATION
  Report Type: Spontaneous
  Country: FR (occurrence: FR)
  Receive Date: 20150128
  Receipt Date: 20150128
  Transmission Date: 20150721
  Serious: Yes (Hospitalization)
  Sender: FDA-Public Use
  Company Number: FR-SA-2015SA006986

PATIENT
  Age: 80 Year
  Sex: Female

DRUGS (1)
  1. LOVENOX [Suspect]
     Active Substance: ENOXAPARIN SODIUM
     Route: 065
     Dates: start: 20150119

REACTIONS (2)
  - Coma [Not Recovered/Not Resolved]
  - Intracranial haematoma [Not Recovered/Not Resolved]

NARRATIVE: CASE EVENT DATE: 20150120
